FAERS Safety Report 22839376 (Version 8)
Quarter: 2024Q1

REPORT INFORMATION
  Report Type: Spontaneous
  Country: US (occurrence: US)
  Receive Date: 20230818
  Receipt Date: 20240103
  Transmission Date: 20240410
  Serious: Yes (Other)
  Sender: FDA-Public Use
  Company Number: US-PFIZER INC-PV202300141224

PATIENT
  Age: 63 Year
  Sex: Female

DRUGS (2)
  1. IBRANCE [Suspect]
     Active Substance: PALBOCICLIB
     Dosage: 125 MG
     Dates: end: 20230915
  2. IBRANCE [Suspect]
     Active Substance: PALBOCICLIB
     Dosage: SHE TAKES THE MEDICATION FOR 21 DAYS

REACTIONS (14)
  - Shoulder operation [Unknown]
  - Stomatitis [Recovered/Resolved]
  - White blood cell count decreased [Not Recovered/Not Resolved]
  - Fatigue [Not Recovered/Not Resolved]
  - Herpes simplex [Unknown]
  - Asthenia [Unknown]
  - Soft tissue disorder [Unknown]
  - Paraesthesia oral [Unknown]
  - Full blood count decreased [Not Recovered/Not Resolved]
  - Red blood cell count decreased [Unknown]
  - Platelet count decreased [Unknown]
  - Genital herpes [Unknown]
  - Urinary tract infection [Not Recovered/Not Resolved]
  - Condition aggravated [Not Recovered/Not Resolved]

NARRATIVE: CASE EVENT DATE: 20230913
